FAERS Safety Report 6063922-4 (Version None)
Quarter: 2009Q1

REPORT INFORMATION
  Report Type: 
  Country: None (occurrence: None)
  Receive Date: 20090130
  Receipt Date: 20090116
  Transmission Date: 20090719
  Serious: No
  Sender: FDA-Public Use
  Company Number: US025333

PATIENT
  Age: 71 Year
  Sex: Male

DRUGS (1)
  1. FENTORA [Suspect]
     Dosage: ONE BUCCAL
     Route: 002
     Dates: start: 20080705, end: 20080705

REACTIONS (3)
  - ACCIDENTAL EXPOSURE [None]
  - LETHARGY [None]
  - VOMITING [None]
